FAERS Safety Report 10199075 (Version 1)
Quarter: 2014Q2

REPORT INFORMATION
  Report Type: Report from Study
  Country: MX (occurrence: MX)
  Receive Date: 20140527
  Receipt Date: 20140527
  Transmission Date: 20141212
  Serious: Yes (Other)
  Sender: FDA-Public Use
  Company Number: PHHY2014MX064587

PATIENT
  Age: 75 Year
  Sex: Male

DRUGS (5)
  1. STALEVO [Suspect]
     Indication: PARKINSON^S DISEASE
     Dosage: 2 DF, DAILY (18.75/75/200 MG)
     Route: 048
     Dates: start: 201404, end: 201404
  2. STALEVO [Suspect]
     Dosage: 4DF, DAILY (25/100/200 MG)
     Route: 048
     Dates: start: 201404, end: 201405
  3. STALEVO [Suspect]
     Dosage: 4DF, DAILY (31.25/125/200 MG)
     Route: 048
  4. STALEVO [Suspect]
     Dosage: 4DF, DAILY (25/100/200 MG)
     Route: 048
  5. SIFROL [Concomitant]
     Indication: TREMOR
     Dosage: 1 DF, UNK (BEFORE TO SLEEP)
     Dates: start: 2005

REACTIONS (10)
  - Deafness [Not Recovered/Not Resolved]
  - Hearing impaired [Unknown]
  - Condition aggravated [Unknown]
  - Thirst [Recovered/Resolved]
  - Feeling abnormal [Unknown]
  - Drug intolerance [Unknown]
  - Nausea [Recovered/Resolved]
  - Dizziness [Recovered/Resolved]
  - Malaise [Unknown]
  - Drug ineffective [Recovered/Resolved]
